FAERS Safety Report 12201654 (Version 1)
Quarter: 2016Q1

REPORT INFORMATION
  Report Type: Spontaneous
  Country: US (occurrence: US)
  Receive Date: 20160322
  Receipt Date: 20160322
  Transmission Date: 20160526
  Serious: No
  Sender: FDA-Public Use
  Company Number: US-SA-2015SA138318

PATIENT
  Sex: Female

DRUGS (1)
  1. NASACORT ALLERGY 24HR [Suspect]
     Active Substance: TRIAMCINOLONE ACETONIDE
     Dosage: SPRAY
     Route: 065

REACTIONS (4)
  - Vomiting [Unknown]
  - Product taste abnormal [Unknown]
  - Product odour abnormal [Unknown]
  - Headache [Unknown]
